FAERS Safety Report 8924305 (Version 2)
Quarter: 2012Q4

REPORT INFORMATION
  Report Type: 
  Country: FR (occurrence: FR)
  Receive Date: 20121126
  Receipt Date: 20121213
  Transmission Date: 20130627
  Serious: Yes (Hospitalization)
  Sender: FDA-Public Use
  Company Number: FR-GLAXOSMITHKLINE-B0844846A

PATIENT
  Age: 68 Year
  Sex: Male

DRUGS (8)
  1. ZELITREX [Suspect]
     Indication: PRODUCT USED FOR UNKNOWN INDICATION
     Route: 065
     Dates: start: 20120812
  2. BACTRIM [Suspect]
     Indication: PRODUCT USED FOR UNKNOWN INDICATION
     Route: 065
     Dates: start: 20120812, end: 20120824
  3. PRIMPERAN [Suspect]
     Indication: PRODUCT USED FOR UNKNOWN INDICATION
     Route: 065
     Dates: start: 20120812
  4. ALDACTAZINE [Concomitant]
  5. MABTHERA [Concomitant]
     Dates: start: 20120810, end: 20120812
  6. OXALIPLATINE [Concomitant]
     Dates: start: 20120810, end: 20120812
  7. ARACYTINE [Concomitant]
     Dates: start: 20120810, end: 20120812
  8. DEXAMETHASONE [Concomitant]
     Dates: start: 20120812, end: 20120814

REACTIONS (9)
  - Rash maculo-papular [Recovered/Resolved]
  - Pyrexia [Recovered/Resolved]
  - Leukopenia [Recovering/Resolving]
  - Neutropenia [Recovering/Resolving]
  - Lymphopenia [Recovering/Resolving]
  - Hyperaemia [Recovered/Resolved]
  - Feeling hot [Unknown]
  - Erythema [Recovered/Resolved]
  - Conjunctival hyperaemia [None]
